FAERS Safety Report 6175377-X (Version None)
Quarter: 2009Q2

REPORT INFORMATION
  Report Type: 
  Country: None (occurrence: None)
  Receive Date: 20090430
  Receipt Date: 20090424
  Transmission Date: 20091009
  Serious: Yes (Death)
  Sender: FDA-Public Use
  Company Number: BE-MERCK-0904BEL00017

PATIENT
  Age: 71 Year
  Sex: Male
  Weight: 71 kg

DRUGS (20)
  1. CANCIDAS [Suspect]
     Indication: FUNGAL INFECTION
     Route: 041
     Dates: start: 20080704, end: 20080704
  2. CANCIDAS [Suspect]
     Route: 041
     Dates: start: 20080705, end: 20080927
  3. CANCIDAS [Suspect]
     Route: 041
     Dates: start: 20081001, end: 20081001
  4. CANCIDAS [Suspect]
     Route: 041
     Dates: start: 20081002, end: 20081107
  5. FLUCONAZOLE [Concomitant]
     Indication: FUNGAL INFECTION
     Route: 048
     Dates: start: 20080610, end: 20080617
  6. FLUCONAZOLE [Concomitant]
     Route: 048
     Dates: start: 20080624, end: 20080624
  7. VORICONAZOLE [Concomitant]
     Indication: FUNGAL INFECTION
     Route: 048
     Dates: start: 20080616, end: 20080623
  8. VORICONAZOLE [Concomitant]
     Route: 048
     Dates: start: 20080625, end: 20080626
  9. VORICONAZOLE [Concomitant]
     Route: 048
     Dates: start: 20080923, end: 20080924
  10. VORICONAZOLE [Concomitant]
     Route: 048
     Dates: start: 20080925, end: 20081010
  11. POSACONAZOLE [Concomitant]
     Indication: FUNGAL INFECTION
     Route: 048
     Dates: start: 20080627, end: 20080704
  12. POSACONAZOLE [Concomitant]
     Route: 048
     Dates: start: 20081103, end: 20081104
  13. AMPHOTERICIN B AND L-(ALPHA)-DIMYRISTOYLPHOSPHATIDYLCHOLINE AND L-(ALP [Concomitant]
     Indication: FUNGAL INFECTION
     Route: 041
     Dates: start: 20080704, end: 20080904
  14. AMPHOTERICIN B AND L-(ALPHA)-DIMYRISTOYLPHOSPHATIDYLCHOLINE AND L-(ALP [Concomitant]
     Route: 041
     Dates: start: 20080908, end: 20080922
  15. AMPHOTERICIN B AND L-(ALPHA)-DIMYRISTOYLPHOSPHATIDYLCHOLINE AND L-(ALP [Concomitant]
     Route: 041
     Dates: start: 20081018, end: 20081103
  16. CEFEPIME [Concomitant]
     Route: 051
  17. VANCOMYCIN [Concomitant]
     Route: 041
  18. MYCOPHENOLATE MOFETIL [Concomitant]
     Route: 065
  19. TACROLIMUS [Concomitant]
     Route: 065
  20. VORICONAZOLE [Concomitant]
     Route: 041
     Dates: start: 20081105, end: 20081107

REACTIONS (5)
  - ADVERSE EVENT [None]
  - BACTERIAL INFECTION [None]
  - DRUG INEFFECTIVE [None]
  - FUNGAL INFECTION [None]
  - GRAFT VERSUS HOST DISEASE [None]
